FAERS Safety Report 8646006 (Version 7)
Quarter: 2013Q4

REPORT INFORMATION
  Report Type: Spontaneous
  Country: US (occurrence: US)
  Receive Date: 20120702
  Receipt Date: 20131016
  Transmission Date: 20140711
  Serious: Yes (Death, Hospitalization, Disabling, Other)
  Sender: FDA-Public Use
  Company Number: US-009507513-1206USA04647

PATIENT
  Sex: Female
  Weight: 72.56 kg

DRUGS (8)
  1. FOSAMAX [Suspect]
     Dosage: 10 MG, QD
     Route: 048
     Dates: start: 20001028, end: 20011024
  2. FOSAMAX [Suspect]
     Dosage: 70 MG, UNK
     Route: 048
     Dates: start: 20011025, end: 20060228
  3. FOSAMAX [Suspect]
     Dosage: 5 MG, QD
     Route: 048
     Dates: start: 19971217, end: 20001027
  4. PROPACET [Concomitant]
     Indication: PAIN
     Dosage: UNK
     Dates: start: 1996, end: 2003
  5. PREMARIN [Concomitant]
     Indication: MENOPAUSE
     Dosage: UNK
     Dates: start: 1995, end: 2002
  6. PROVERA [Concomitant]
     Indication: MENOPAUSE
     Dosage: UNK
     Dates: start: 1995, end: 2002
  7. NORVASC [Concomitant]
     Indication: HYPERTENSION
     Dosage: UNK
     Dates: start: 1995, end: 2009
  8. CLARITIN [Concomitant]
     Indication: HYPERSENSITIVITY
     Dosage: UNK
     Dates: start: 1997, end: 2003

REACTIONS (43)
  - Femur fracture [Not Recovered/Not Resolved]
  - Intramedullary rod insertion [Not Recovered/Not Resolved]
  - Fall [Unknown]
  - Femur fracture [Not Recovered/Not Resolved]
  - Knee arthroplasty [Unknown]
  - Spinal decompression [Recovering/Resolving]
  - Neck surgery [Recovering/Resolving]
  - Cholecystectomy [Unknown]
  - Arthrodesis [Unknown]
  - Atrial tachycardia [Recovered/Resolved]
  - Dyspnoea [Recovering/Resolving]
  - Local swelling [Recovering/Resolving]
  - Spinal compression fracture [Unknown]
  - Pubis fracture [Unknown]
  - Atrioventricular block complete [Fatal]
  - Cardiac failure congestive [Fatal]
  - Low turnover osteopathy [Not Recovered/Not Resolved]
  - Osteoporosis [Not Recovered/Not Resolved]
  - Stress fracture [Not Recovered/Not Resolved]
  - Osteoarthritis [Unknown]
  - Synovial disorder [Unknown]
  - Brain stem syndrome [Unknown]
  - Osteoporosis [Unknown]
  - Arterial insufficiency [Unknown]
  - Aortic calcification [Unknown]
  - Fall [Unknown]
  - Fall [Unknown]
  - Anxiety [Unknown]
  - Depression [Unknown]
  - Bone deformity [Not Recovered/Not Resolved]
  - Hand deformity [Not Recovered/Not Resolved]
  - Ankle deformity [Not Recovered/Not Resolved]
  - Peptic ulcer [Recovering/Resolving]
  - Bundle branch block left [Unknown]
  - Hypotension [Unknown]
  - Medical device removal [Unknown]
  - Dental discomfort [Unknown]
  - Dementia [Unknown]
  - Limb operation [Unknown]
  - Abdominal pain [Recovering/Resolving]
  - Duodenal ulcer [Unknown]
  - Off label use [Unknown]
  - Gastrooesophageal reflux disease [Unknown]
